FAERS Safety Report 4675219-5 (Version None)
Quarter: 2005Q2

REPORT INFORMATION
  Report Type: 
  Country: None (occurrence: None)
  Receive Date: 20050526
  Receipt Date: 20050513
  Transmission Date: 20051028
  Serious: Yes (Hospitalization, Other)
  Sender: FDA-Public Use
  Company Number: 2005074871

PATIENT
  Age: 69 Year
  Sex: Male

DRUGS (7)
  1. SULFASALAZINE [Suspect]
     Indication: COLITIS ULCERATIVE
     Dosage: 2 GRAM (1 IN 1 D), ORAL
     Route: 048
     Dates: end: 20031201
  2. PANKREON FORTE (DIASTASE, LIPASE, OX BILE EXTRACT, PANCREATIN, PROTEAS [Concomitant]
  3. ACETAMINOPHEN [Concomitant]
  4. DEXTROPROPOXIFEN (DEXTROPROPOXYPHENE) [Concomitant]
  5. LANSOPRAZOLE [Concomitant]
  6. LACTULOSE [Concomitant]
  7. XANOR - SLOW RELEASE (ALPRAZOLAM) [Concomitant]

REACTIONS (3)
  - INTERSTITIAL LUNG DISEASE [None]
  - LYMPHADENOPATHY MEDIASTINAL [None]
  - SARCOIDOSIS [None]
